FAERS Safety Report 5466119-1 (Version None)
Quarter: 2007Q3

REPORT INFORMATION
  Report Type: 
  Country: None (occurrence: None)
  Receive Date: 20070924
  Receipt Date: 20070914
  Transmission Date: 20080115
  Serious: Yes (Hospitalization)
  Sender: FDA-Public Use
  Company Number: GB-ABBOTT-07P-167-0417095-00

PATIENT
  Sex: Female

DRUGS (2)
  1. HUMIRA [Suspect]
     Indication: CROHN'S DISEASE
     Route: 058
     Dates: start: 20070824
  2. HUMIRA [Suspect]
     Route: 058

REACTIONS (4)
  - DIZZINESS [None]
  - HYPERHIDROSIS [None]
  - PALPITATIONS [None]
  - TREMOR [None]
